FAERS Safety Report 8576997-5 (Version None)
Quarter: 2012Q3

REPORT INFORMATION
  Report Type: 
  Country: None (occurrence: None)
  Receive Date: 20120807
  Receipt Date: 20120727
  Transmission Date: 20120928
  Serious: Yes (Hospitalization)
  Sender: FDA-Public Use
  Company Number: US-BAYER-2012-032635

PATIENT
  Age: 20 Year
  Sex: Female
  Weight: 77 kg

DRUGS (4)
  1. ADVIL [Concomitant]
     Indication: CHEST PAIN
     Dosage: 2 PILLS
  2. YAZ [Suspect]
     Indication: PREMENSTRUAL SYNDROME
     Dosage: 2 PILLS
     Dates: start: 20100301, end: 20100801
  3. YAZ [Suspect]
  4. ADVIL [Concomitant]
     Indication: MUSCLE SPASMS

REACTIONS (9)
  - DEEP VEIN THROMBOSIS [None]
  - GENERAL PHYSICAL HEALTH DETERIORATION [None]
  - INJURY [None]
  - PULMONARY EMBOLISM [None]
  - POST-TRAUMATIC STRESS DISORDER [None]
  - EMOTIONAL DISTRESS [None]
  - PAIN [None]
  - ANXIETY [None]
  - PULMONARY INFARCTION [None]
